FAERS Safety Report 16376604 (Version 1)
Quarter: 2019Q2

REPORT INFORMATION
  Report Type: Spontaneous
  Country: FR (occurrence: FR)
  Receive Date: 20190531
  Receipt Date: 20190531
  Transmission Date: 20190711
  Serious: Yes (Hospitalization)
  Sender: FDA-Public Use
  Company Number: FR-ROCHE-2326786

PATIENT
  Age: 45 Year
  Sex: Female

DRUGS (3)
  1. VALIUM [Suspect]
     Active Substance: DIAZEPAM
     Indication: PAIN
     Route: 048
     Dates: start: 20190506, end: 20190506
  2. RISPERDAL [Suspect]
     Active Substance: RISPERIDONE
     Indication: PAIN
     Route: 048
     Dates: start: 20190506, end: 20190506
  3. THYROZOL [Concomitant]
     Active Substance: METHIMAZOLE

REACTIONS (6)
  - Tachycardia [Recovered/Resolved]
  - Miosis [Recovered/Resolved]
  - Intentional product use issue [Unknown]
  - Headache [Recovered/Resolved]
  - Vomiting [Recovered/Resolved]
  - Psychomotor skills impaired [Recovered/Resolved]

NARRATIVE: CASE EVENT DATE: 20190506
